FAERS Safety Report 5812118-7 (Version None)
Quarter: 2008Q3

REPORT INFORMATION
  Report Type: 
  Country: None (occurrence: None)
  Receive Date: 20080716
  Receipt Date: 20080711
  Transmission Date: 20090109
  Serious: Yes (Other)
  Sender: FDA-Public Use
  Company Number: US-WATSON-2008-03953

PATIENT
  Sex: Female

DRUGS (1)
  1. NICOTINE POLACRILEX (WATSON LABORATORIES) [Suspect]
     Indication: DRUG USE FOR UNKNOWN INDICATION
     Dosage: ^CHEWS ALL DAY, MORE THAN RECOMMENDED^
     Route: 002
     Dates: start: 19980101

REACTIONS (4)
  - CARCINOEMBRYONIC ANTIGEN INCREASED [None]
  - COLON CANCER [None]
  - HERNIA [None]
  - INTESTINAL PERFORATION [None]
